FAERS Safety Report 6133815-2 (Version None)
Quarter: 2009Q1

REPORT INFORMATION
  Report Type: 
  Country: None (occurrence: None)
  Receive Date: 20090324
  Receipt Date: 20090316
  Transmission Date: 20090719
  Serious: Yes (Other)
  Sender: FDA-Public Use
  Company Number: MPS1-1000185

PATIENT
  Age: 5 Month
  Sex: Male
  Weight: 10.1 kg

DRUGS (3)
  1. ALDURAZYME [Suspect]
     Indication: MUCOPOLYSACCHARIDOSIS
     Dosage: 100 U/KG, 1X/W, INTRAVENOUS
     Route: 042
     Dates: start: 20081030
  2. HYDROCORTISONE [Concomitant]
  3. TEICOPLANIN (TEICOPLANIN) [Concomitant]

REACTIONS (4)
  - CATHETER SEPSIS [None]
  - FEBRILE CONVULSION [None]
  - LIVEDO RETICULARIS [None]
  - PROCEDURAL HYPERTENSION [None]
